FAERS Safety Report 25471595 (Version 1)
Quarter: 2025Q2

REPORT INFORMATION
  Report Type: Spontaneous
  Country: US (occurrence: US)
  Receive Date: 20250624
  Receipt Date: 20250624
  Transmission Date: 20250717
  Serious: Yes (Other)
  Sender: OXFORD PHARMACEUTICALS, LLC
  Company Number: US-Oxford Pharmaceuticals, LLC-2179248

PATIENT
  Age: 31 Year
  Sex: Male

DRUGS (6)
  1. SERTRALINE HYDROCHLORIDE [Suspect]
     Active Substance: SERTRALINE HYDROCHLORIDE
     Indication: Anxiety
  2. LITHIUM [Concomitant]
     Active Substance: LITHIUM
  3. RISPERIDONE [Concomitant]
     Active Substance: RISPERIDONE
  4. MODAFINIL [Concomitant]
     Active Substance: MODAFINIL
  5. CLONAZEPAM [Concomitant]
     Active Substance: CLONAZEPAM
  6. VALPROIC ACID [Concomitant]
     Active Substance: VALPROIC ACID

REACTIONS (2)
  - Activation syndrome [Recovered/Resolved]
  - Drug interaction [Unknown]
